FAERS Safety Report 14381518 (Version 3)
Quarter: 2018Q1

REPORT INFORMATION
  Report Type: Spontaneous
  Country: US (occurrence: US)
  Receive Date: 20180112
  Receipt Date: 20180209
  Transmission Date: 20180509
  Serious: Yes (Disabling, Other)
  Sender: FDA-Public Use
  Company Number: PHEH2018US001039

PATIENT
  Age: 55 Year
  Sex: Female

DRUGS (2)
  1. CIPRODEX [Suspect]
     Active Substance: CIPROFLOXACIN HYDROCHLORIDE\DEXAMETHASONE
     Indication: LABYRINTHITIS
     Dosage: UNK
     Route: 001
     Dates: start: 20171230, end: 20180102
  2. CIPRODEX [Suspect]
     Active Substance: CIPROFLOXACIN HYDROCHLORIDE\DEXAMETHASONE
     Indication: OTITIS EXTERNA

REACTIONS (13)
  - Vomiting [Recovering/Resolving]
  - Oral pain [Recovering/Resolving]
  - External ear cellulitis [Recovered/Resolved]
  - Blister rupture [Recovering/Resolving]
  - Tongue blistering [Recovering/Resolving]
  - Dizziness [Recovering/Resolving]
  - External ear inflammation [Unknown]
  - Eating disorder [Recovering/Resolving]
  - Dyspnoea [Recovering/Resolving]
  - Glossitis [Unknown]
  - Blister [Recovering/Resolving]
  - Lymphadenopathy [Unknown]
  - Stomatitis [Recovering/Resolving]

NARRATIVE: CASE EVENT DATE: 20180102
